FAERS Safety Report 9883574 (Version 4)
Quarter: 2014Q1

REPORT INFORMATION
  Report Type: Report from Study
  Country: GB (occurrence: GB)
  Receive Date: 20140210
  Receipt Date: 20140324
  Transmission Date: 20141002
  Serious: Yes (Hospitalization)
  Sender: FDA-Public Use
  Company Number: GB-ROCHE-1242054

PATIENT
  Age: 58 Year
  Sex: Female

DRUGS (10)
  1. PERTUZUMAB [Suspect]
     Indication: HER-2 POSITIVE BREAST CANCER
     Dosage: LOADING DOSE ON CYCLE ONE?LAST DOSE PRIOR TO ADVERSE EVENT 24/JUN/2013?LAST DOSE PRIOR TO EVENT:07/A
     Route: 042
     Dates: start: 20130624
  2. PERTUZUMAB [Suspect]
     Dosage: MAINTENANCE DOSE?DATE OF LAST DOSE PRIOR TO THE EVENT OF FEBRILE NEUTROPENIA: 17/JUL/2013
     Route: 042
     Dates: start: 20130715
  3. TRASTUZUMAB [Suspect]
     Indication: HER-2 POSITIVE BREAST CANCER
     Dosage: LOADING DOSE. 512MG?LAST DOSE PRIOR TO ADVERSE EVENT: 24/JUN/2013.
     Route: 042
     Dates: start: 20130624
  4. TRASTUZUMAB [Suspect]
     Dosage: MAINTENANCE DOSE?DATE OF LAST DOSE PRIOR TO THE EVENT OF FEBRILE NEUTROPENIA: 17/JUL/2013?DATE OF LA
     Route: 042
     Dates: start: 20130715
  5. DOCETAXEL [Suspect]
     Indication: HER-2 POSITIVE BREAST CANCER
     Dosage: LAST DOSE PRIOR TO ADVERSE EVENT: 24/JUN/2013.?DATE OF LAST DOSE PRIOR TO THE EVENT OF FEBRILE NEUTR
     Route: 042
     Dates: start: 20130624
  6. DOCETAXEL [Suspect]
     Dosage: DOSE REDUCED DUE TO FEBRILE NEUTROPENIA.
     Route: 042
     Dates: start: 20130805
  7. AMITRIPTYLINE [Concomitant]
     Indication: SLEEP DISORDER
     Route: 065
     Dates: start: 20130621
  8. CODEINE PHOSPHATE [Concomitant]
     Indication: ANALGESIC THERAPY
     Route: 065
     Dates: start: 20130621, end: 20130625
  9. ADCAL-D3 [Concomitant]
     Indication: PROPHYLAXIS
     Route: 065
     Dates: start: 20130621
  10. ZOMETA [Concomitant]
     Indication: PROPHYLAXIS
     Route: 065
     Dates: start: 20130621

REACTIONS (4)
  - Pyrexia [Recovered/Resolved]
  - Hypersensitivity [Recovered/Resolved]
  - Febrile neutropenia [Recovered/Resolved]
  - Neutropenia [Recovered/Resolved]
